FAERS Safety Report 9788198 (Version 1)
Quarter: 2013Q4

REPORT INFORMATION
  Report Type: Spontaneous
  Country: US (occurrence: None)
  Receive Date: 20131227
  Receipt Date: 20131227
  Transmission Date: 20140711
  Serious: Yes (Hospitalization)
  Sender: FDA-Public Use
  Company Number: None

PATIENT
  Age: 73 Year
  Sex: Female
  Weight: 51.08 kg

DRUGS (14)
  1. FLUCONAZOLE [Suspect]
     Indication: URINARY TRACT INFECTION
     Route: 048
  2. XARELTO [Suspect]
     Indication: DEEP VEIN THROMBOSIS
     Route: 048
  3. ADVAIR [Concomitant]
  4. MAG OX [Concomitant]
  5. NAMENDA [Concomitant]
  6. SPIRIVA [Concomitant]
  7. VITAMIN B12 [Concomitant]
  8. PROMETHAZINE [Concomitant]
  9. MIRALAX [Concomitant]
  10. KCL [Concomitant]
  11. REGLAN [Concomitant]
  12. VIT D3 [Concomitant]
  13. MEGACE [Concomitant]
  14. TYLENOL ARTHRITIS [Concomitant]

REACTIONS (8)
  - Unresponsive to stimuli [None]
  - Hypotension [None]
  - Hepatitis [None]
  - Coagulopathy [None]
  - Ischaemic hepatitis [None]
  - Drug-induced liver injury [None]
  - Contusion [None]
  - International normalised ratio increased [None]
